FAERS Safety Report 22845655 (Version 4)
Quarter: 2023Q4

REPORT INFORMATION
  Report Type: Report from Study
  Country: ES (occurrence: ES)
  Receive Date: 20230821
  Receipt Date: 20231107
  Transmission Date: 20240110
  Serious: Yes (Hospitalization, Other)
  Sender: FDA-Public Use
  Company Number: ES-GILEAD-2023-0637724

PATIENT
  Age: 70 Year
  Sex: Male

DRUGS (6)
  1. AZACITIDINE [Suspect]
     Active Substance: AZACITIDINE
     Indication: Acute myeloid leukaemia
     Dosage: UNK, C1D1
     Route: 065
     Dates: start: 20230718
  2. MAGROLIMAB [Suspect]
     Active Substance: MAGROLIMAB
     Indication: Acute myeloid leukaemia
     Dosage: UNK, C1D1
     Route: 065
     Dates: start: 20230718, end: 20230718
  3. MAGROLIMAB [Suspect]
     Active Substance: MAGROLIMAB
     Dosage: UNK, C1D4
     Route: 065
     Dates: start: 20230722, end: 20230722
  4. MAGROLIMAB [Suspect]
     Active Substance: MAGROLIMAB
     Dosage: UNK, C1D8
     Route: 065
     Dates: start: 20230726, end: 20230726
  5. MAGROLIMAB [Suspect]
     Active Substance: MAGROLIMAB
     Dosage: UNK
     Route: 065
     Dates: end: 20231011
  6. EMPAGLIFLOZIN\METFORMIN HYDROCHLORIDE [Concomitant]
     Active Substance: EMPAGLIFLOZIN\METFORMIN HYDROCHLORIDE
     Indication: Type 2 diabetes mellitus
     Dosage: UNK
     Route: 065

REACTIONS (7)
  - Febrile neutropenia [Unknown]
  - Disease progression [Unknown]
  - Haemolysis [Unknown]
  - Hyperhidrosis [Unknown]
  - Fall [Unknown]
  - Haemoglobin decreased [Unknown]
  - Nausea [Unknown]

NARRATIVE: CASE EVENT DATE: 20230801
